FAERS Safety Report 5456883-X (Version None)
Quarter: 2007Q3

REPORT INFORMATION
  Report Type: 
  Country: None (occurrence: None)
  Receive Date: 20070918
  Receipt Date: 20070330
  Transmission Date: 20080115
  Serious: No
  Sender: FDA-Public Use
  Company Number: US-ASTRAZENECA-2006UW26719

PATIENT
  Age: 54 Year
  Sex: Female
  Weight: 104.5 kg

DRUGS (1)
  1. SEROQUEL [Suspect]
     Indication: DEPRESSION
     Route: 048
     Dates: start: 20000101

REACTIONS (2)
  - CARDIOVASCULAR DISORDER [None]
  - DIABETES MELLITUS [None]
